FAERS Safety Report 14081832 (Version 2)
Quarter: 2018Q1

REPORT INFORMATION
  Report Type: Spontaneous
  Country: AT (occurrence: AT)
  Receive Date: 20171013
  Receipt Date: 20180116
  Transmission Date: 20180508
  Serious: Yes (Other)
  Sender: FDA-Public Use
  Company Number: AT-PFIZER INC-2017439645

PATIENT
  Age: 55 Year
  Sex: Female

DRUGS (13)
  1. ZYPREXA [Suspect]
     Active Substance: OLANZAPINE
     Dosage: 5 MG, UNK
     Dates: start: 20170625, end: 20170625
  2. ABILIFY [Suspect]
     Active Substance: ARIPIPRAZOLE
     Dosage: 15 MG, UNK
     Dates: start: 20170630
  3. ACECOMB [Suspect]
     Active Substance: HYDROCHLOROTHIAZIDE\LISINOPRIL
     Dosage: 1 DF, UNK
     Route: 048
  4. TEMESTA /00273201/ [Concomitant]
     Active Substance: LORAZEPAM
     Dosage: 1 MG, UNK
     Route: 048
     Dates: start: 20170625, end: 20170628
  5. ZYPREXA [Suspect]
     Active Substance: OLANZAPINE
     Route: 048
  6. ZYPREXA [Suspect]
     Active Substance: OLANZAPINE
     Dosage: 5 MG, UNK
     Dates: start: 20170630
  7. EBRANTIL [Suspect]
     Active Substance: URAPIDIL
     Dosage: 30 MG, UNK, SINCE MONTHS
     Route: 048
     Dates: end: 20170626
  8. ABILIFY [Suspect]
     Active Substance: ARIPIPRAZOLE
     Dosage: 5 MG, UNK
     Dates: start: 20170626, end: 20170629
  9. GEROLAMIC [Concomitant]
     Dosage: 25 MG, UNK
     Route: 048
     Dates: start: 20170626, end: 20170711
  10. ZYPREXA [Suspect]
     Active Substance: OLANZAPINE
     Dosage: 10 MG, UNK
     Dates: start: 20170626, end: 20170629
  11. ACEMIN [Suspect]
     Active Substance: LISINOPRIL
     Dosage: 5 MG, UNK, SINCE MONTHS
     Route: 048
  12. NORVASC [Suspect]
     Active Substance: AMLODIPINE BESYLATE
     Dosage: 5 MG, UNK, SINCE MONTHS
     Route: 048
  13. GEROLAMIC [Concomitant]
     Dosage: 100 MG, UNK
     Route: 048
     Dates: start: 20170712

REACTIONS (2)
  - Blood pressure decreased [Recovered/Resolved]
  - Syncope [Recovered/Resolved]

NARRATIVE: CASE EVENT DATE: 20170626
